FAERS Safety Report 20026274 (Version 1)
Quarter: 2021Q4

REPORT INFORMATION
  Report Type: Spontaneous
  Country: US (occurrence: US)
  Receive Date: 20211102
  Receipt Date: 20211102
  Transmission Date: 20220303
  Serious: No
  Sender: FDA-Public Use
  Company Number: US-GALDERMA-US2021017601

PATIENT

DRUGS (6)
  1. DIFFERIN GEL [Suspect]
     Active Substance: ADAPALENE
     Indication: Acne
     Dosage: 1 DOSAGE FORM, BIW, 2-3 TIMES PER WEEK, AT NIGHT
     Route: 061
     Dates: start: 2021
  2. Unspecified Cleanser [Concomitant]
     Indication: Product used for unknown indication
     Route: 061
  3. Unspecified Toner [Concomitant]
     Indication: Product used for unknown indication
     Route: 061
  4. Unspecified Hyaluronic Serum [Concomitant]
     Indication: Product used for unknown indication
     Route: 061
  5. Unspecified Eye Cream [Concomitant]
     Indication: Product used for unknown indication
     Route: 061
  6. Unspecified Gentle Moisturizer [Concomitant]
     Indication: Product used for unknown indication
     Route: 061

REACTIONS (4)
  - Skin exfoliation [Unknown]
  - Dry skin [Unknown]
  - Inappropriate schedule of product administration [Recovered/Resolved]
  - Underdose [Recovered/Resolved]

NARRATIVE: CASE EVENT DATE: 20210101
